FAERS Safety Report 15723736 (Version 1)
Quarter: 2018Q4

REPORT INFORMATION
  Report Type: Spontaneous
  Country: FR (occurrence: FR)
  Receive Date: 20181214
  Receipt Date: 20181214
  Transmission Date: 20190205
  Serious: Yes (Other)
  Sender: FDA-Public Use
  Company Number: FR-MERZ NORTH AMERICA, INC.-18MRZ-00633

PATIENT
  Sex: Female

DRUGS (1)
  1. ASCLERA [Suspect]
     Active Substance: POLIDOCANOL
     Indication: VARICOSE VEIN
     Dosage: AETOXISCLEROL TAMPONNE 0.5% (LIQUID, DILUTED TO 0.35%), ACTIVE SUBSTANCES: LAUROMACROGOL 400:  DOSAG
     Route: 042
     Dates: start: 20181022, end: 20181113

REACTIONS (4)
  - Injection site oedema [Not Recovered/Not Resolved]
  - Injection site erythema [Not Recovered/Not Resolved]
  - Epidermal necrosis [Not Recovered/Not Resolved]
  - Skin reaction [Not Recovered/Not Resolved]
